FAERS Safety Report 24905333 (Version 9)
Quarter: 2025Q4

REPORT INFORMATION
  Report Type: Spontaneous
  Country: JP (occurrence: JP)
  Receive Date: 20250130
  Receipt Date: 20251121
  Transmission Date: 20260117
  Serious: Yes (Hospitalization)
  Sender: AKEBIA THERAPEUTICS
  Company Number: JP-IQVIA-JT2025JP000021

PATIENT
  Age: 76 Year
  Sex: Male
  Weight: 55.5 kg

DRUGS (45)
  1. FERRIC CITRATE ANHYDROUS [Suspect]
     Active Substance: FERRIC CITRATE ANHYDROUS
     Indication: Iron deficiency anaemia
     Dosage: 250 MILLIGRAM, QD
     Route: 048
     Dates: start: 20241116
  2. FERRIC CITRATE ANHYDROUS [Suspect]
     Active Substance: FERRIC CITRATE ANHYDROUS
     Indication: Hyperphosphataemia
  3. ENARODUSTAT [Suspect]
     Active Substance: ENARODUSTAT
     Indication: Nephrogenic anaemia
     Dosage: 4 MILLIGRAM, QD
     Route: 048
     Dates: start: 20241010, end: 20241127
  4. ENARODUSTAT [Suspect]
     Active Substance: ENARODUSTAT
     Dosage: 2 MILLIGRAM, QD
     Route: 048
     Dates: start: 20241128, end: 20250122
  5. ENARODUSTAT [Suspect]
     Active Substance: ENARODUSTAT
     Dosage: 4 MILLIGRAM, QD
     Route: 048
     Dates: start: 20250123, end: 20250409
  6. ENARODUSTAT [Suspect]
     Active Substance: ENARODUSTAT
     Dosage: 6 MILLIGRAM, QD
     Route: 048
     Dates: start: 20250410, end: 20250611
  7. ENARODUSTAT [Suspect]
     Active Substance: ENARODUSTAT
     Dosage: 4 MILLIGRAM, QD
     Route: 048
     Dates: start: 20250612
  8. ROCALTROL [Suspect]
     Active Substance: CALCITRIOL
     Indication: Hyperparathyroidism secondary
     Dosage: 1 MICROGRAM, QWK
     Route: 042
     Dates: end: 20241011
  9. ROCALTROL [Suspect]
     Active Substance: CALCITRIOL
     Indication: Hypocalcaemia
     Dosage: 1.5 MICROGRAM, QWK
     Route: 042
     Dates: start: 20241012, end: 20250328
  10. ROCALTROL [Suspect]
     Active Substance: CALCITRIOL
     Dosage: 1 MICROGRAM, QWK (WEEK 2 AND WEEK 3)
     Route: 042
     Dates: start: 20241012, end: 20250328
  11. ROCALTROL [Suspect]
     Active Substance: CALCITRIOL
     Dosage: 1 MICROGRAM, QWK
     Route: 042
     Dates: start: 20250329, end: 20250411
  12. ROCALTROL [Suspect]
     Active Substance: CALCITRIOL
     Dosage: 1.5 MICROGRAM, 2 TIMES/WK
     Route: 042
     Dates: start: 20250412, end: 20250718
  13. ROCALTROL [Suspect]
     Active Substance: CALCITRIOL
     Dosage: 1.5 MICROGRAM, QWK
     Route: 042
     Dates: start: 20250719, end: 20250725
  14. ROCALTROL [Suspect]
     Active Substance: CALCITRIOL
     Dosage: 1 MICROGRAM, QWK
     Route: 042
     Dates: start: 20250719, end: 20250725
  15. ROCALTROL [Suspect]
     Active Substance: CALCITRIOL
     Dosage: 1.5 MICROGRAM, 2 TIMES/WK
     Route: 042
     Dates: start: 20250726
  16. ROCALTROL [Suspect]
     Active Substance: CALCITRIOL
     Dosage: 1 MICROGRAM, QWK
     Route: 042
     Dates: start: 20250726
  17. URSODIOL [Concomitant]
     Active Substance: URSODIOL
     Indication: Chronic hepatitis
     Dosage: 100 MILLIGRAM, BID
     Route: 048
  18. LINZESS [Concomitant]
     Active Substance: LINACLOTIDE
     Indication: Constipation
     Dosage: 0.25 MILLIGRAM, QD
     Route: 048
  19. TRAMADOL [Concomitant]
     Active Substance: TRAMADOL
     Indication: Pain
     Dosage: 50 MILLIGRAM, TID
     Route: 048
  20. BENIDIPINE HYDROCHLORIDE [Concomitant]
     Active Substance: BENIDIPINE HYDROCHLORIDE
     Indication: Hypertension
     Dosage: 1 MILLIGRAM, QD
     Route: 048
     Dates: end: 20250207
  21. BENIDIPINE HYDROCHLORIDE [Concomitant]
     Active Substance: BENIDIPINE HYDROCHLORIDE
     Dosage: 2 MILLIGRAM, 4 TIMES/WK
     Route: 048
     Dates: start: 20250208
  22. MAGNESIUM OXIDE [Concomitant]
     Active Substance: MAGNESIUM OXIDE
     Indication: Constipation
     Dosage: 330 MILLIGRAM, QD
     Route: 048
     Dates: end: 20250516
  23. MAGNESIUM OXIDE [Concomitant]
     Active Substance: MAGNESIUM OXIDE
     Dosage: 500 MILLIGRAM, QD
     Route: 048
     Dates: start: 20250517
  24. SPIRONOLACTONE [Concomitant]
     Active Substance: SPIRONOLACTONE
     Indication: Hypertension
     Dosage: 50 MILLIGRAM, QD
     Route: 048
     Dates: end: 20250409
  25. SPIRONOLACTONE [Concomitant]
     Active Substance: SPIRONOLACTONE
     Dosage: 25 MILLIGRAM, QD
     Route: 048
     Dates: start: 20250410
  26. GASTER [Concomitant]
     Active Substance: FAMOTIDINE
     Indication: Gastric ulcer
     Dosage: 10 MILLIGRAM, QD
     Route: 048
  27. GASTER [Concomitant]
     Active Substance: FAMOTIDINE
     Indication: Gastrooesophageal reflux disease
  28. FURSULTIAMINE [Concomitant]
     Active Substance: FURSULTIAMINE
     Indication: Vitamin B1 deficiency
     Dosage: 25 MILLIGRAM, QD
     Route: 048
  29. FOLIC ACID [Concomitant]
     Active Substance: FOLIC ACID
     Indication: Folate deficiency
     Dosage: 5 MILLIGRAM, QD
     Route: 048
  30. SODIUM FERROUS CITRATE [Concomitant]
     Active Substance: SODIUM FERROUS CITRATE
     Indication: Iron deficiency anaemia
     Dosage: 50 MILLIGRAM, QD
     Route: 048
     Dates: end: 20241115
  31. POLAPREZINC [Concomitant]
     Active Substance: POLAPREZINC
     Indication: Gastric ulcer
     Dosage: 75 MILLIGRAM, QD
     Route: 048
  32. ALLELOCK [Concomitant]
     Active Substance: OLOPATADINE HYDROCHLORIDE
     Indication: Rhinitis allergic
     Dosage: 5 MILLIGRAM, QD
     Route: 048
  33. RINDERON VG [Concomitant]
     Active Substance: BETAMETHASONE VALERATE\GENTAMICIN SULFATE
     Indication: Pruritus
     Dosage: UNK, PRN
     Route: 003
  34. LOXOPROFEN SODIUM [Concomitant]
     Active Substance: LOXOPROFEN SODIUM
     Indication: Osteoarthritis
     Dosage: 100 MILLIGRAM, PRN
     Route: 003
  35. CALONAL [Concomitant]
     Active Substance: ACETAMINOPHEN
     Indication: Pain
     Dosage: 500 MILLIGRAM, PRN
     Route: 048
     Dates: start: 20241116
  36. CALONAL [Concomitant]
     Active Substance: ACETAMINOPHEN
     Indication: Pain
  37. CALTAN [Concomitant]
     Active Substance: CALCIUM CARBONATE
     Indication: Hyperphosphataemia
     Dosage: 250 MILLIGRAM, QD
     Route: 048
     Dates: start: 20241217, end: 20250207
  38. CALTAN [Concomitant]
     Active Substance: CALCIUM CARBONATE
     Indication: Hyperphosphataemia
     Dosage: 250 MILLIGRAM, BID
     Route: 048
     Dates: start: 20250208, end: 20250613
  39. CALTAN [Concomitant]
     Active Substance: CALCIUM CARBONATE
     Dosage: 250 MILLIGRAM, TID
     Route: 048
     Dates: start: 20250614
  40. HERBALS [Concomitant]
     Active Substance: HERBALS
     Indication: Diarrhoea
     Dosage: 3 GRAM, TID
     Route: 048
     Dates: start: 20241219
  41. IRON SUCROSE [Concomitant]
     Active Substance: IRON SUCROSE
     Indication: Iron deficiency anaemia
     Dosage: 40 MILLIGRAM, Q4WK
     Route: 042
     Dates: start: 20250109, end: 20250806
  42. IRON SUCROSE [Concomitant]
     Active Substance: IRON SUCROSE
     Indication: Iron deficiency anaemia
     Dosage: 40 MILLIGRAM
     Route: 042
     Dates: start: 20250807
  43. ALPROSTADIL ALFADEX [Concomitant]
     Active Substance: ALPROSTADIL ALFADEX
     Indication: Pruritus
     Dosage: UNK, PRN
     Route: 003
     Dates: start: 20250313
  44. HEPARINOID [Concomitant]
     Indication: Pruritus
     Dosage: UNK, PRN
     Route: 003
     Dates: start: 20250313
  45. FERROUS SULFATE [Concomitant]
     Active Substance: FERROUS SULFATE
     Indication: Iron deficiency anaemia
     Dosage: 105 MILLIGRAM, QD
     Route: 048
     Dates: start: 20250913

REACTIONS (8)
  - Subdural haematoma [Recovering/Resolving]
  - Iron deficiency anaemia [Recovering/Resolving]
  - Hypocalcaemia [Recovering/Resolving]
  - Hyperphosphataemia [Recovered/Resolved]
  - Pain [Recovering/Resolving]
  - Hyperphosphataemia [Recovered/Resolved]
  - Hyperparathyroidism secondary [Recovered/Resolved]
  - Cystitis [Recovered/Resolved]

NARRATIVE: CASE EVENT DATE: 20241010
